FAERS Safety Report 6284171-0 (Version None)
Quarter: 2009Q3

REPORT INFORMATION
  Report Type: 
  Country: None (occurrence: None)
  Receive Date: 20090722
  Receipt Date: 20090715
  Transmission Date: 20100115
  Serious: Yes (Life-Threatening, Hospitalization)
  Sender: FDA-Public Use
  Company Number: GXKR2009DE08038

PATIENT
  Age: 77 Year
  Sex: Female
  Weight: 71 kg

DRUGS (13)
  1. PREDNISOLONE [Suspect]
     Dosage: 15 MG, QD, ORAL
     Route: 048
     Dates: start: 20060901
  2. VERAPAMIL [Suspect]
     Indication: ATRIAL FIBRILLATION
     Dosage: 240 MG, QD, ORAL
     Route: 048
     Dates: start: 20060101, end: 20090514
  3. DIGITOXIN INJ [Suspect]
     Indication: ATRIAL FIBRILLATION
     Dosage: 0.07 MG, QD, ORAL
     Route: 048
     Dates: start: 20070901, end: 20090514
  4. AZITHROMYCIN [Suspect]
     Indication: BRONCHITIS
     Dosage: ORAL
     Route: 048
     Dates: start: 20090501, end: 20090511
  5. ACETYLSALICYLATE (ACETYLSALICYLATE) [Concomitant]
  6. AMBROXOL (AMBROXOL) [Concomitant]
  7. CALCIUM D3 ^STADA^ (CALCIUM, COLECALCIFEROL) [Concomitant]
  8. ESIDRIX [Concomitant]
  9. LEVOTHYROXINE SODIUM [Concomitant]
  10. FOSAMAX [Concomitant]
  11. METHOTREXATE SODIUM [Concomitant]
  12. SYMBICORT [Concomitant]
  13. DICLOFENAC SODIUM [Concomitant]

REACTIONS (3)
  - DRUG INTERACTION [None]
  - PULMONARY EMBOLISM [None]
  - THERAPEUTIC AGENT TOXICITY [None]
